FAERS Safety Report 16564903 (Version 1)
Quarter: 2019Q3

REPORT INFORMATION
  Report Type: Spontaneous
  Country: US (occurrence: US)
  Receive Date: 20190711
  Receipt Date: 20190711
  Transmission Date: 20191004
  Serious: No
  Sender: FDA-Public Use
  Company Number: None

PATIENT
  Age: 56 Year
  Sex: Female
  Weight: 72 kg

DRUGS (1)
  1. TYMLOS [Suspect]
     Active Substance: ABALOPARATIDE
     Indication: FRACTURE
     Dosage: ?          OTHER STRENGTH:N/A;QUANTITY:1 INJECTION(S);?
     Route: 058
     Dates: start: 20190327, end: 20190706

REACTIONS (3)
  - Pain [None]
  - Skin disorder [None]
  - Bone pain [None]
